FAERS Safety Report 8839439 (Version 1)
Quarter: 2012Q4

REPORT INFORMATION
  Report Type: Spontaneous
  Country: US (occurrence: None)
  Receive Date: 20121012
  Receipt Date: 20121012
  Transmission Date: 20130627
  Serious: Yes (Hospitalization)
  Sender: FDA-Public Use
  Company Number: None

PATIENT
  Age: 21 Year
  Sex: Female
  Weight: 62.6 kg

DRUGS (1)
  1. BACTRIM [Suspect]
     Indication: RASH FACE
     Dosage: 2/DAY   po
     Route: 048
     Dates: start: 20120918, end: 20121001

REACTIONS (1)
  - Stevens-Johnson syndrome [None]
